FAERS Safety Report 13877813 (Version 1)
Quarter: 2017Q3

REPORT INFORMATION
  Report Type: Spontaneous
  Country: US (occurrence: US)
  Receive Date: 20170817
  Receipt Date: 20170817
  Transmission Date: 20171127
  Serious: No
  Sender: FDA-Public Use
  Company Number: GXBR2017US001715

PATIENT
  Age: 44 Year
  Sex: Female

DRUGS (1)
  1. CLONAZEPAM TABLETS, USP [Suspect]
     Active Substance: CLONAZEPAM
     Indication: MUSCLE DISORDER
     Dosage: 1.5 DF, QD (0.5 DF IN THE MORNING AND 1 DF QHS)
     Route: 065
     Dates: start: 20170501

REACTIONS (3)
  - Feeling abnormal [Recovered/Resolved]
  - Headache [Recovered/Resolved]
  - Bradyphrenia [Recovered/Resolved]

NARRATIVE: CASE EVENT DATE: 20170501
